FAERS Safety Report 16675378 (Version 1)
Quarter: 2019Q3

REPORT INFORMATION
  Report Type: Spontaneous
  Country: CH (occurrence: CH)
  Receive Date: 20190806
  Receipt Date: 20190806
  Transmission Date: 20191004
  Serious: Yes (Other)
  Sender: FDA-Public Use
  Company Number: CH-009507513-1907CHE016748

PATIENT
  Age: 42 Year
  Sex: Female

DRUGS (16)
  1. CYTARABINE. [Concomitant]
     Active Substance: CYTARABINE
     Indication: ACUTE MYELOID LEUKAEMIA
  2. VORICONAZOLE. [Suspect]
     Active Substance: VORICONAZOLE
     Indication: BRONCHOPULMONARY ASPERGILLOSIS
     Dosage: UNK
     Route: 042
  3. POSACONAZOLE [Suspect]
     Active Substance: POSACONAZOLE
     Indication: BRONCHOPULMONARY ASPERGILLOSIS
     Dosage: 300 MILLIGRAM, TWICE DAILY AS A LOADING DOSE
     Route: 048
  4. POSACONAZOLE [Suspect]
     Active Substance: POSACONAZOLE
     Dosage: 300 MILLIGRAM, DAILY
  5. POSACONAZOLE [Suspect]
     Active Substance: POSACONAZOLE
     Dosage: 400 MILLIGRAM, ONCE DAILY
  6. VORICONAZOLE. [Suspect]
     Active Substance: VORICONAZOLE
     Dosage: UNK
     Route: 048
  7. PIPERACILLIN AND TAZOBACTAM [Suspect]
     Active Substance: PIPERACILLIN SODIUM\TAZOBACTAM SODIUM
     Indication: STREPTOCOCCAL INFECTION
  8. CASPOFUNGIN ACETATE. [Concomitant]
     Active Substance: CASPOFUNGIN ACETATE
     Indication: BRONCHOPULMONARY ASPERGILLOSIS
  9. CEFEPIME [Concomitant]
     Active Substance: CEFEPIME HYDROCHLORIDE
     Indication: STREPTOCOCCAL INFECTION
  10. VANCOMYCIN [Concomitant]
     Active Substance: VANCOMYCIN
     Indication: BACTERIAL INFECTION
  11. AMSACRINE [Concomitant]
     Active Substance: AMSACRINE
     Indication: ACUTE MYELOID LEUKAEMIA
  12. CRESEMBA [Suspect]
     Active Substance: ISAVUCONAZONIUM SULFATE
     Indication: BRONCHOPULMONARY ASPERGILLOSIS
     Dosage: 200 MILLIGRAM, QD
     Route: 048
  13. CASPOFUNGIN ACETATE. [Concomitant]
     Active Substance: CASPOFUNGIN ACETATE
     Indication: MUCOSAL INFLAMMATION
  14. AZTREONAM. [Concomitant]
     Active Substance: AZTREONAM
     Indication: BACTERIAL INFECTION
  15. MEROPENEM. [Concomitant]
     Active Substance: MEROPENEM
     Indication: BACTERIAL INFECTION
  16. CEFTRIAXONE. [Concomitant]
     Active Substance: CEFTRIAXONE
     Indication: STREPTOCOCCAL INFECTION

REACTIONS (1)
  - Drug-induced liver injury [Recovered/Resolved]
